FAERS Safety Report 4896145-2 (Version None)
Quarter: 2006Q1

REPORT INFORMATION
  Report Type: 
  Country: None (occurrence: None)
  Receive Date: 20060131
  Receipt Date: 20060123
  Transmission Date: 20060701
  Serious: Yes (Death)
  Sender: FDA-Public Use
  Company Number: US-JNJFOC-20060100356

PATIENT
  Sex: Male
  Weight: 97.52 kg

DRUGS (12)
  1. REMICADE [Suspect]
     Route: 042
  2. METHOTREXATE [Concomitant]
  3. FOLIC ACID [Concomitant]
  4. NORVASC [Concomitant]
     Indication: CARDIAC DISORDER
  5. TOPROL-XL [Concomitant]
     Indication: CARDIAC DISORDER
  6. NIASPAN [Concomitant]
     Indication: CARDIAC DISORDER
  7. LISINOPRIL [Concomitant]
  8. ZETIA [Concomitant]
  9. GLUCOTROL [Concomitant]
  10. ASPIRIN [Concomitant]
  11. CLONIDINE HCL [Concomitant]
  12. HYDRALAZINE HCL [Concomitant]

REACTIONS (2)
  - MYOCARDIAL INFARCTION [None]
  - PLEURAL EFFUSION [None]
